FAERS Safety Report 5584032-6 (Version None)
Quarter: 2008Q1

REPORT INFORMATION
  Report Type: 
  Country: None (occurrence: None)
  Receive Date: 20080108
  Receipt Date: 20071231
  Transmission Date: 20080703
  Serious: Yes (Other)
  Sender: FDA-Public Use
  Company Number: US-ROCHE-458672

PATIENT
  Age: 23 Year
  Sex: Male
  Weight: 83 kg

DRUGS (1)
  1. ACCUTANE [Suspect]
     Route: 065
     Dates: start: 19940728, end: 19941101

REACTIONS (9)
  - ARTHRITIS [None]
  - BLOOD CHOLESTEROL INCREASED [None]
  - COLITIS ULCERATIVE [None]
  - ERYTHEMA [None]
  - INTESTINAL POLYP [None]
  - MASS [None]
  - OSTEOPENIA [None]
  - POUCHITIS [None]
  - SKIN EXFOLIATION [None]
